FAERS Safety Report 8455079-7 (Version None)
Quarter: 2012Q2

REPORT INFORMATION
  Report Type: 
  Country: None (occurrence: None)
  Receive Date: 20120615
  Receipt Date: 20120615
  Transmission Date: 20120825
  Serious: Yes (Other)
  Sender: FDA-Public Use
  Company Number: None

PATIENT
  Age: 64 Year
  Sex: Female
  Weight: 99.7913 kg

DRUGS (1)
  1. HUMIRA [Suspect]

REACTIONS (6)
  - ERUCTATION [None]
  - DYSPEPSIA [None]
  - CHEST PAIN [None]
  - DIZZINESS [None]
  - ORAL INFECTION [None]
  - VERTIGO [None]
